FAERS Safety Report 5068383-X (Version None)
Quarter: 2006Q3

REPORT INFORMATION
  Report Type: 
  Country: None (occurrence: None)
  Receive Date: 20060802
  Receipt Date: 20050830
  Transmission Date: 20061208
  Serious: Yes (Hospitalization)
  Sender: FDA-Public Use
  Company Number: US-BRISTOL-MYERS SQUIBB COMPANY-13094826

PATIENT
  Age: 74 Year
  Sex: Male

DRUGS (11)
  1. COUMADIN [Suspect]
     Indication: DEEP VEIN THROMBOSIS
     Route: 048
  2. ASPIRIN [Concomitant]
  3. CARBOPLATIN [Concomitant]
  4. DILTIAZEM HCL [Concomitant]
  5. GABAPENTIN [Concomitant]
  6. GEMZAR [Concomitant]
  7. GLYBURIDE [Concomitant]
  8. METFORMIN HYDROCHLORIDE [Concomitant]
  9. PRIMIDONE [Concomitant]
  10. SEREVENT [Concomitant]
  11. SIMVASTATIN [Concomitant]

REACTIONS (1)
  - PULMONARY EMBOLISM [None]
